FAERS Safety Report 5075706-4 (Version None)
Quarter: 2006Q3

REPORT INFORMATION
  Report Type: 
  Country: None (occurrence: None)
  Receive Date: 20060804
  Receipt Date: 20060731
  Transmission Date: 20061208
  Serious: Yes (Death, Life-Threatening)
  Sender: FDA-Public Use
  Company Number: HQWYE546331JUL06

PATIENT

DRUGS (1)
  1. CORDARONE [Suspect]
     Indication: SUPRAVENTRICULAR TACHYCARDIA
     Dosage: 150 MG BOLUS FOLLOWED BY AN ADDITIONAL 75 MG INTRAVENOUS BOLUS
     Route: 040
     Dates: start: 20060719

REACTIONS (2)
  - HYPOTENSION [None]
  - VENTRICULAR FIBRILLATION [None]
